FAERS Safety Report 8108149-7 (Version None)
Quarter: 2012Q1

REPORT INFORMATION
  Report Type: 
  Country: None (occurrence: None)
  Receive Date: 20120202
  Receipt Date: 20120123
  Transmission Date: 20120608
  Serious: Yes (Death, Other)
  Sender: FDA-Public Use
  Company Number: GB-UCBSA-050137

PATIENT
  Sex: Male

DRUGS (7)
  1. KEPPRA [Suspect]
     Dates: start: 20110101, end: 20110101
  2. CLONAZEPEN [Concomitant]
     Dates: start: 20110101, end: 20110101
  3. OLANZAPINE [Concomitant]
     Dates: end: 20110101
  4. MIRTAZAPINE [Concomitant]
     Dates: end: 20110101
  5. LORAZAPAN [Concomitant]
     Dosage: PRN
     Dates: end: 20110101
  6. KEPPRA [Suspect]
     Indication: CONVULSION
     Dosage: DOSAGE INCREASED
     Dates: start: 20110101, end: 20110101
  7. ZOPICLONE [Concomitant]
     Dosage: AT NIGHT

REACTIONS (6)
  - SLEEP APNOEA SYNDROME [None]
  - MYOCLONUS [None]
  - CARDIAC ARREST [None]
  - NON-SMALL CELL LUNG CANCER [None]
  - PSYCHOTIC DISORDER [None]
  - PARANEOPLASTIC SYNDROME [None]
